FAERS Safety Report 6936634-X (Version None)
Quarter: 2010Q3

REPORT INFORMATION
  Report Type: 
  Country: None (occurrence: None)
  Receive Date: 20100823
  Receipt Date: 20100816
  Transmission Date: 20110219
  Serious: Yes (Hospitalization, Other)
  Sender: FDA-Public Use
  Company Number: FI-ROCHE-721370

PATIENT
  Sex: Female

DRUGS (2)
  1. AVASTIN [Suspect]
     Dosage: FREQUENCY: 1 INFUSION. DOSE: UNREPORTED.FORM: INFUSION
     Route: 042
     Dates: start: 20100621, end: 20100621
  2. TARCEVA [Suspect]
     Dosage: FREQUENCY: UNREPORTED.
     Route: 048
     Dates: start: 20091001

REACTIONS (6)
  - ABSCESS INTESTINAL [None]
  - LARGE INTESTINE PERFORATION [None]
  - LUNG INFECTION [None]
  - METASTASES TO SPINE [None]
  - PULMONARY EMBOLISM [None]
  - RADIATION PNEUMONITIS [None]
